FAERS Safety Report 4345263-6 (Version None)
Quarter: 2004Q2

REPORT INFORMATION
  Report Type: 
  Country: None (occurrence: None)
  Receive Date: 20040423
  Receipt Date: 20021125
  Transmission Date: 20050107
  Serious: Yes (Hospitalization)
  Sender: FDA-Public Use
  Company Number: PHHO2002CZ09278

PATIENT
  Age: 61 Year
  Sex: Female
  Weight: 63 kg

DRUGS (2)
  1. COMBIPATCH [Suspect]
     Indication: MENOPAUSAL SYMPTOMS
     Dosage: TREATMENT PERIOD
     Route: 062
     Dates: start: 20020820, end: 20021104
  2. EUTHYROX [Concomitant]
     Indication: HYPOTHYROIDISM
     Dates: start: 19750101

REACTIONS (5)
  - CONCOMITANT DISEASE PROGRESSION [None]
  - EYELID OEDEMA [None]
  - FACE OEDEMA [None]
  - URTICARIA CHRONIC [None]
  - URTICARIA GENERALISED [None]
